FAERS Safety Report 10733721 (Version 2)
Quarter: 2015Q1

REPORT INFORMATION
  Report Type: Report from Study
  Country: CA (occurrence: CA)
  Receive Date: 20150123
  Receipt Date: 20150129
  Transmission Date: 20150721
  Serious: Yes (Death)
  Sender: FDA-Public Use
  Company Number: PHHY2015CA008720

PATIENT
  Sex: Male

DRUGS (3)
  1. CLOZARIL [Suspect]
     Active Substance: CLOZAPINE
     Dosage: 125 MG, BID
     Route: 048
  2. CLOZARIL [Suspect]
     Active Substance: CLOZAPINE
     Indication: SCHIZOAFFECTIVE DISORDER
     Dosage: UNK
     Route: 048
     Dates: start: 19951018
  3. CLOZARIL [Suspect]
     Active Substance: CLOZAPINE
     Dosage: 300 MG, QD
     Route: 048

REACTIONS (1)
  - Chronic kidney disease [Fatal]
